FAERS Safety Report 4881756-0 (Version None)
Quarter: 2006Q1

REPORT INFORMATION
  Report Type: 
  Country: None (occurrence: None)
  Receive Date: 20060116
  Receipt Date: 20060106
  Transmission Date: 20060701
  Serious: Yes (Hospitalization)
  Sender: FDA-Public Use
  Company Number: CH-ABBOTT-06P-151-0321378-00

PATIENT
  Age: 45 Year
  Sex: Female

DRUGS (6)
  1. REDUCTIL 10MG [Suspect]
     Indication: OBESITY
     Dates: start: 20051001, end: 20051113
  2. ASPIRIN [Concomitant]
     Indication: DRUG USE FOR UNKNOWN INDICATION
     Dosage: COATED TABLETS, FILM
     Route: 048
  3. GABAPENTIN [Concomitant]
     Indication: DRUG USE FOR UNKNOWN INDICATION
     Dosage: 2.5 PER DAY; COATED TABLETS, FILM
     Route: 048
  4. METOPROLOL TARTRATE [Concomitant]
     Indication: DRUG USE FOR UNKNOWN INDICATION
     Route: 048
  5. LORAZEPAM [Concomitant]
     Indication: DRUG USE FOR UNKNOWN INDICATION
     Route: 048
  6. MAGNESIUM [Concomitant]
     Indication: DRUG USE FOR UNKNOWN INDICATION

REACTIONS (8)
  - DIPLOPIA [None]
  - HEADACHE [None]
  - HYPOAESTHESIA [None]
  - PARAESTHESIA [None]
  - PHONOPHOBIA [None]
  - PHOTOPHOBIA [None]
  - SENSORY DISTURBANCE [None]
  - VISUAL ACUITY REDUCED [None]
